FAERS Safety Report 25562291 (Version 1)
Quarter: 2025Q3

REPORT INFORMATION
  Report Type: Spontaneous
  Country: CN (occurrence: CN)
  Receive Date: 20250716
  Receipt Date: 20250716
  Transmission Date: 20251021
  Serious: Yes (Other)
  Sender: AMGEN
  Company Number: CN-AMGEN-CHNSP2025134147

PATIENT

DRUGS (3)
  1. CARFILZOMIB [Suspect]
     Active Substance: CARFILZOMIB
     Indication: Plasma cell myeloma refractory
     Route: 065
  2. POMALIDOMIDE [Suspect]
     Active Substance: POMALIDOMIDE
     Indication: Plasma cell myeloma refractory
     Dosage: 4 MILLIGRAM, QD, DAYS 1 TO 21
     Route: 065
  3. DEXAMETHASONE [Suspect]
     Active Substance: DEXAMETHASONE
     Indication: Plasma cell myeloma refractory
     Route: 065

REACTIONS (28)
  - Plasma cell myeloma refractory [Unknown]
  - Thrombosis [Unknown]
  - Neutropenia [Unknown]
  - Thrombocytopenia [Unknown]
  - Stomatitis [Unknown]
  - Blood fibrinogen decreased [Unknown]
  - Bilirubin conjugated increased [Unknown]
  - Oral pain [Unknown]
  - Lipase increased [Unknown]
  - Blood triglycerides increased [Unknown]
  - Proteinuria [Unknown]
  - Anaemia [Unknown]
  - Diarrhoea [Unknown]
  - Nausea [Unknown]
  - Decreased appetite [Unknown]
  - Alanine aminotransferase increased [Unknown]
  - Fatigue [Unknown]
  - Constipation [Unknown]
  - Blood bilirubin increased [Unknown]
  - Vomiting [Unknown]
  - Haemorrhage [Unknown]
  - Rash [Unknown]
  - Blood albumin decreased [Unknown]
  - Herpes zoster [Unknown]
  - Hypertension [Unknown]
  - Pyrexia [Unknown]
  - Therapy partial responder [Unknown]
  - Off label use [Unknown]
